FAERS Safety Report 9482194 (Version 1)
Quarter: 2013Q3

REPORT INFORMATION
  Report Type: Spontaneous
  Country: BR (occurrence: BR)
  Receive Date: 20130828
  Receipt Date: 20130828
  Transmission Date: 20140515
  Serious: Yes (Other)
  Sender: FDA-Public Use
  Company Number: BR-AMGEN-BRASP2013060121

PATIENT
  Age: 64 Year
  Sex: Female

DRUGS (2)
  1. ENBREL [Suspect]
     Indication: PRODUCT USED FOR UNKNOWN INDICATION
     Dosage: UNK
     Route: 065
  2. ACTEMRA [Suspect]
     Indication: RHEUMATOID ARTHRITIS
     Dosage: UNK
     Route: 065
     Dates: start: 201301

REACTIONS (13)
  - Tympanic membrane disorder [Unknown]
  - Hearing impaired [Unknown]
  - Hypertension [Recovered/Resolved]
  - Drug ineffective [Unknown]
  - Swelling [Unknown]
  - Alopecia [Unknown]
  - Anxiety [Unknown]
  - Bursitis [Not Recovered/Not Resolved]
  - Tendonitis [Not Recovered/Not Resolved]
  - Pain [Unknown]
  - Spinal pain [Not Recovered/Not Resolved]
  - Ear infection [Unknown]
  - Infection [Recovered/Resolved]
